FAERS Safety Report 13340494 (Version 1)
Quarter: 2017Q1

REPORT INFORMATION
  Report Type: Report from Study
  Country: US (occurrence: US)
  Receive Date: 20170316
  Receipt Date: 20170316
  Transmission Date: 20170428
  Serious: Yes (Other)
  Sender: FDA-Public Use
  Company Number: US-AMGEN-USASL2016185894

PATIENT

DRUGS (5)
  1. PREDNISONE. [Concomitant]
     Active Substance: PREDNISONE
     Indication: EXPOSURE DURING BREAST FEEDING
     Dosage: 10 MG, QD
     Route: 063
     Dates: start: 20161215
  2. CALCIUM [Concomitant]
     Active Substance: CALCIUM
     Indication: EXPOSURE DURING BREAST FEEDING
     Dosage: 600 MG, QD
     Route: 063
     Dates: start: 2012
  3. ENBREL [Suspect]
     Active Substance: ETANERCEPT
     Indication: EXPOSURE DURING BREAST FEEDING
     Dosage: 50 MG, QWK
     Route: 063
     Dates: start: 20161222
  4. ZYRTEC [Concomitant]
     Active Substance: CETIRIZINE HYDROCHLORIDE
     Indication: EXPOSURE DURING BREAST FEEDING
     Dosage: UNK UNK, QD
     Route: 063
  5. VITAMIN D [Concomitant]
     Active Substance: CHOLECALCIFEROL
     Dosage: 400 IU, QD
     Route: 048
     Dates: start: 20160613

REACTIONS (2)
  - Developmental hip dysplasia [Unknown]
  - Exposure during breast feeding [Unknown]

NARRATIVE: CASE EVENT DATE: 2016
